FAERS Safety Report 13292267 (Version 3)
Quarter: 2017Q4

REPORT INFORMATION
  Report Type: Report from Study
  Country: CA (occurrence: CA)
  Receive Date: 20170303
  Receipt Date: 20171129
  Transmission Date: 20180320
  Serious: Yes (Other)
  Sender: FDA-Public Use
  Company Number: CA-INCYTE CORPORATION-2016IN006332

PATIENT

DRUGS (9)
  1. ZINC. [Concomitant]
     Active Substance: ZINC
     Route: 065
  2. ZINC. [Concomitant]
     Active Substance: ZINC
     Route: 065
  3. JAKAVI [Suspect]
     Active Substance: RUXOLITINIB
     Dosage: 15 MG, QD (10 MG QAM AND 5 MG QPM)
     Route: 048
     Dates: start: 20160909
  4. JAKAVI [Suspect]
     Active Substance: RUXOLITINIB
     Dosage: 10 MG, BID
     Route: 048
  5. JAKAVI [Suspect]
     Active Substance: RUXOLITINIB
     Indication: MYELOFIBROSIS
     Dosage: 5 MG, BID
     Route: 048
     Dates: start: 2016
  6. METAMUCIL [Concomitant]
     Active Substance: PLANTAGO SEED
     Indication: DIARRHOEA
     Route: 065
  7. ZINC. [Concomitant]
     Active Substance: ZINC
     Indication: PRODUCT USED FOR UNKNOWN INDICATION
     Route: 065
  8. ZINC. [Concomitant]
     Active Substance: ZINC
     Route: 065
  9. ZINC. [Concomitant]
     Active Substance: ZINC
     Route: 065

REACTIONS (6)
  - Confusional state [Unknown]
  - Dizziness [Unknown]
  - Blood pressure increased [Recovering/Resolving]
  - Diarrhoea [Unknown]
  - Headache [Unknown]
  - Tinnitus [Unknown]

NARRATIVE: CASE EVENT DATE: 2016
